FAERS Safety Report 19115108 (Version 1)
Quarter: 2021Q2

REPORT INFORMATION
  Report Type: Spontaneous
  Country: GB (occurrence: GB)
  Receive Date: 20210408
  Receipt Date: 20210408
  Transmission Date: 20210717
  Serious: Yes (Other)
  Sender: FDA-Public Use
  Company Number: GB-VALIDUS PHARMACEUTICALS LLC-GB-2021VAL000483

PATIENT

DRUGS (4)
  1. FUROSEMIDE. [Suspect]
     Active Substance: FUROSEMIDE
     Indication: LYMPHOEDEMA
     Dosage: 20 MG, QD
     Route: 048
     Dates: start: 201609
  2. ATORVASTATIN [Concomitant]
     Active Substance: ATORVASTATIN
     Indication: PRODUCT USED FOR UNKNOWN INDICATION
     Dosage: UNK
  3. AMLODIPINE [Concomitant]
     Active Substance: AMLODIPINE BESYLATE
     Indication: PRODUCT USED FOR UNKNOWN INDICATION
     Dosage: UNK
  4. SPIRONOLACTONE. [Suspect]
     Active Substance: SPIRONOLACTONE
     Indication: LYMPHOEDEMA
     Dosage: 100 MG, QD
     Route: 065
     Dates: start: 201609

REACTIONS (7)
  - Pain [Unknown]
  - Impaired quality of life [Unknown]
  - Muscle tightness [Unknown]
  - Micturition urgency [Unknown]
  - Breast pain [Recovering/Resolving]
  - Breast tenderness [Recovering/Resolving]
  - Drug intolerance [Unknown]
